FAERS Safety Report 7063358-3 (Version None)
Quarter: 2010Q4

REPORT INFORMATION
  Report Type: 
  Country: None (occurrence: None)
  Receive Date: 20101026
  Receipt Date: 20091023
  Transmission Date: 20110411
  Serious: No
  Sender: FDA-Public Use
  Company Number: US-ABBOTT-09P-163-0605412-00

PATIENT
  Sex: Female
  Weight: 97.61 kg

DRUGS (4)
  1. LUPRON DEPOT [Suspect]
     Indication: ENDOMETRIOSIS
     Route: 050
     Dates: start: 20090501
  2. CAPODEX [Concomitant]
     Indication: GASTROINTESTINAL ULCER
     Route: 048
  3. BELLADONNA [Concomitant]
     Indication: GASTRIC DISORDER
     Route: 048
  4. BELLADONNA [Concomitant]
     Indication: GASTROOESOPHAGEAL REFLUX DISEASE

REACTIONS (10)
  - ALOPECIA [None]
  - AMNESIA [None]
  - ARTHRALGIA [None]
  - ASTHENIA [None]
  - DECREASED APPETITE [None]
  - DEPRESSION [None]
  - DISORIENTATION [None]
  - FEELING OF BODY TEMPERATURE CHANGE [None]
  - INSOMNIA [None]
  - WEIGHT DECREASED [None]
